FAERS Safety Report 13363176 (Version 1)
Quarter: 2017Q1

REPORT INFORMATION
  Report Type: Spontaneous
  Country: US (occurrence: US)
  Receive Date: 20170322
  Receipt Date: 20170322
  Transmission Date: 20170429
  Serious: Yes (Other)
  Sender: FDA-Public Use
  Company Number: None

PATIENT
  Age: 60 Year
  Sex: Female
  Weight: 109.1 kg

DRUGS (1)
  1. SUTENT [Suspect]
     Active Substance: SUNITINIB MALATE
     Indication: METASTASES TO KIDNEY
     Dosage: 37.5MG QD X 21D AND 7D OFF BY MOUTH
     Route: 048
     Dates: start: 20161027

REACTIONS (1)
  - Dysphagia [None]

NARRATIVE: CASE EVENT DATE: 20161212
